FAERS Safety Report 6468855-7 (Version None)
Quarter: 2009Q4

REPORT INFORMATION
  Report Type: 
  Country: None (occurrence: None)
  Receive Date: 20091203
  Receipt Date: 20090226
  Transmission Date: 20100525
  Serious: Yes (Hospitalization)
  Sender: FDA-Public Use
  Company Number: US-ELI_LILLY_AND_COMPANY-US200610004072

PATIENT
  Sex: Male
  Weight: 92.97 kg

DRUGS (7)
  1. ZYPREXA [Suspect]
     Dates: start: 20000701, end: 20010201
  2. RISPERIDONE [Concomitant]
     Dates: start: 20000101
  3. PAROXETINE [Concomitant]
     Dates: start: 20000101
  4. SERTRALINE HCL [Concomitant]
     Dates: start: 20010101, end: 20030101
  5. SEROQUEL [Concomitant]
     Dates: start: 20030601
  6. EFFEXOR [Concomitant]
     Dates: start: 20040501
  7. LOPRESSOR [Concomitant]
     Dates: start: 20060601

REACTIONS (5)
  - BLOOD TRIGLYCERIDES INCREASED [None]
  - CARDIAC DISORDER [None]
  - CONVULSION [None]
  - DIABETES MELLITUS [None]
  - METABOLIC DISORDER [None]
